FAERS Safety Report 25542040 (Version 2)
Quarter: 2025Q3

REPORT INFORMATION
  Report Type: Spontaneous
  Country: CA (occurrence: CA)
  Receive Date: 20250711
  Receipt Date: 20250723
  Transmission Date: 20251020
  Serious: Yes (Other)
  Sender: CELLTRION
  Company Number: CA-CELLTRION INC.-2025CA004325

PATIENT

DRUGS (1)
  1. INFLIXIMAB [Suspect]
     Active Substance: INFLIXIMAB
     Indication: Crohn^s disease
     Dosage: 120 MG EVERY 14 DAYS/120.0 MILLIGRAM, 1 EVERY 2 WEEKS
     Route: 058
     Dates: start: 20250124

REACTIONS (3)
  - Mucous stools [Unknown]
  - Diarrhoea [Unknown]
  - Drug effect less than expected [Unknown]
